FAERS Safety Report 7860756-2 (Version None)
Quarter: 2011Q4

REPORT INFORMATION
  Report Type: 
  Country: None (occurrence: None)
  Receive Date: 20111027
  Receipt Date: 20111013
  Transmission Date: 20120403
  Serious: Yes (Hospitalization, Other)
  Sender: FDA-Public Use
  Company Number: US-BAYER-2011-018962

PATIENT
  Age: 29 Year
  Sex: Female
  Weight: 69 kg

DRUGS (5)
  1. ALUMINIUM CHLORIDE [Concomitant]
  2. ZOLOFT [Concomitant]
  3. VALTREX [Concomitant]
  4. B-COMPLEX [VITAMIN B NOS] [Concomitant]
  5. YASMIN [Suspect]
     Indication: CONTRACEPTION
     Dosage: UNK
     Route: 048
     Dates: start: 20020901, end: 20040501

REACTIONS (6)
  - PULMONARY EMBOLISM [None]
  - PAIN [None]
  - MANIA [None]
  - DEEP VEIN THROMBOSIS [None]
  - VENOUS INSUFFICIENCY [None]
  - MENTAL DISORDER [None]
